FAERS Safety Report 6441983-8 (Version None)
Quarter: 2009Q4

REPORT INFORMATION
  Report Type: 
  Country: None (occurrence: None)
  Receive Date: 20091110
  Receipt Date: 20090909
  Transmission Date: 20100525
  Serious: No
  Sender: FDA-Public Use
  Company Number: 1000008769

PATIENT
  Age: 54 Year
  Sex: Female

DRUGS (11)
  1. SAVELLA [Suspect]
     Indication: FIBROMYALGIA
     Dosage: SEE IMAGE
     Route: 048
     Dates: start: 20090830, end: 20090830
  2. SAVELLA [Suspect]
     Indication: FIBROMYALGIA
     Dosage: SEE IMAGE
     Route: 048
     Dates: start: 20090831, end: 20090901
  3. SAVELLA [Suspect]
     Indication: FIBROMYALGIA
     Dosage: SEE IMAGE
     Route: 048
     Dates: start: 20090902, end: 20090905
  4. SAVELLA [Suspect]
     Indication: FIBROMYALGIA
     Dosage: SEE IMAGE
     Route: 048
     Dates: start: 20090906
  5. HYDROCHLOROTHIAZIDE [Concomitant]
  6. TAGAMET [Concomitant]
  7. SPIRIVA [Concomitant]
  8. PREVACID [Concomitant]
  9. TRAZODONE HCL [Concomitant]
  10. HYDROCODONE [Concomitant]
  11. CALCIUM [Concomitant]

REACTIONS (2)
  - DIZZINESS [None]
  - FEELING JITTERY [None]
